FAERS Safety Report 5007005-0 (Version None)
Quarter: 2006Q2

REPORT INFORMATION
  Report Type: 
  Country: None (occurrence: None)
  Receive Date: 20060517
  Receipt Date: 20060504
  Transmission Date: 20061013
  Serious: Yes (Death, Other)
  Sender: FDA-Public Use
  Company Number: B0423071A

PATIENT
  Sex: 0

DRUGS (6)
  1. MELPHALAN (MELPHALAN) [Suspect]
     Indication: STEM CELL TRANSPLANT
     Dosage: 140 MG/M2 / SINGLE DOSE / INTRAVENOUS
     Route: 042
  2. RADIOTHERAPY (RADIOTHERAPY) [Suspect]
     Indication: STEM CELL TRANSPLANT
     Dosage: 1.5 GRAY
  3. VINCRISTINE [Concomitant]
  4. DOXORUBICIN HCL [Concomitant]
  5. DEXAMETHASONE TAB [Concomitant]
  6. CYCLOPHOSPHAMIDE [Concomitant]

REACTIONS (2)
  - CARDIAC FAILURE [None]
  - VENTRICULAR ARRHYTHMIA [None]
